FAERS Safety Report 7382170-9 (Version None)
Quarter: 2011Q1

REPORT INFORMATION
  Report Type: 
  Country: None (occurrence: None)
  Receive Date: 20110329
  Receipt Date: 20110316
  Transmission Date: 20110831
  Serious: Yes (Other)
  Sender: FDA-Public Use
  Company Number: BR-GENENTECH-306222

PATIENT
  Sex: Female
  Weight: 75 kg

DRUGS (12)
  1. RITUXIMAB [Suspect]
     Dosage: UNK
     Route: 065
     Dates: start: 20110201
  2. RITUXIMAB [Suspect]
     Dosage: 1000 MG/ML, UNK
     Route: 065
     Dates: start: 20100301, end: 20100301
  3. SYNTHROID [Concomitant]
     Indication: PRODUCT USED FOR UNKNOWN INDICATION
     Dosage: 200 MG, UNK
  4. METHOTREXATE [Concomitant]
     Indication: PRODUCT USED FOR UNKNOWN INDICATION
     Dosage: UNK
  5. ISCOVER [Concomitant]
     Indication: PRODUCT USED FOR UNKNOWN INDICATION
     Dosage: UNK
  6. GENERIC COMPONENTS UNKNOWN [Concomitant]
     Indication: PREMEDICATION
  7. GALVUSMET [Concomitant]
     Indication: PRODUCT USED FOR UNKNOWN INDICATION
  8. RITUXIMAB [Suspect]
     Indication: RHEUMATOID ARTHRITIS
     Dosage: UNK
     Route: 042
     Dates: start: 20090301, end: 20090301
  9. LIPLESS [Concomitant]
     Indication: PRODUCT USED FOR UNKNOWN INDICATION
     Dosage: UNK
  10. ARAVA [Concomitant]
     Indication: PRODUCT USED FOR UNKNOWN INDICATION
     Dosage: UNK
  11. ACTOS [Concomitant]
     Indication: PRODUCT USED FOR UNKNOWN INDICATION
     Dosage: UNK
  12. VIVACOR [Concomitant]
     Indication: PRODUCT USED FOR UNKNOWN INDICATION
     Dosage: UNK

REACTIONS (4)
  - GASTRITIS [None]
  - ARTHRALGIA [None]
  - MALAISE [None]
  - MYOCARDIAL INFARCTION [None]
